FAERS Safety Report 7305417-3 (Version None)
Quarter: 2011Q1

REPORT INFORMATION
  Report Type: 
  Country: None (occurrence: None)
  Receive Date: 20110222
  Receipt Date: 20110218
  Transmission Date: 20110831
  Serious: Yes (Other)
  Sender: FDA-Public Use
  Company Number: US-PFIZER INC-2011036601

PATIENT
  Sex: Male
  Weight: 86.168 kg

DRUGS (2)
  1. CLONAZEPAM [Concomitant]
     Dosage: UNK
  2. NARDIL [Suspect]
     Indication: DEPRESSION
     Dosage: 15 MG, 3X/DAY
     Route: 048
     Dates: start: 19850101

REACTIONS (1)
  - PROSTATE CANCER [None]
